FAERS Safety Report 4883107-4 (Version None)
Quarter: 2006Q1

REPORT INFORMATION
  Report Type: 
  Country: None (occurrence: None)
  Receive Date: 20060113
  Receipt Date: 20051228
  Transmission Date: 20060701
  Serious: Yes (Disabling)
  Sender: FDA-Public Use
  Company Number: 06H-087-0304319-00

PATIENT
  Age: 80 Year
  Sex: Male
  Weight: 57 kg

DRUGS (22)
  1. PRECEDEX [Suspect]
     Indication: SEDATION
     Dosage: 0.2 - 0.7 MCG/KG/HR, NOT REPORTED, INTRAVENOUS
     Route: 042
     Dates: start: 20051209, end: 20051210
  2. MIDAZOLAM HCL [Concomitant]
  3. PROPOFOL [Concomitant]
  4. VECURONIUM (VECURONIUM) [Concomitant]
  5. FENTANYL CITRATE [Concomitant]
  6. ENALAPRIL MALEATE [Concomitant]
  7. METILDIGOXIN (METILDIGOXIN) [Concomitant]
  8. FUROSEMIDE [Concomitant]
  9. NICORANDIL (NICORANDIL) [Concomitant]
  10. CILOSTAZOLE (CILOSTAZOL) [Concomitant]
  11. ETHYL ICOSAPENTATE (ETHYL ICOSAPENTATE) [Concomitant]
  12. ASPIRIN [Concomitant]
  13. ALLOPURINOL [Concomitant]
  14. VERAPAMIL [Concomitant]
  15. SEVOFLURANE [Concomitant]
  16. DOPAMINE HCL [Concomitant]
  17. NOREPINEPHRINE BITARTRATE [Concomitant]
  18. DOBUTAMINE (DOBUTAMINE) [Concomitant]
  19. NICARDIPINE HCL [Concomitant]
  20. ATROPINE SULFATE [Concomitant]
  21. NEOSTIGMINE (NEOSTIGMINE) [Concomitant]
  22. AMPICILLINE SODIUM/SULBACTAM SODIUM (UNACID) [Concomitant]

REACTIONS (1)
  - RENAL IMPAIRMENT [None]
